FAERS Safety Report 11432472 (Version 1)
Quarter: 2015Q3

REPORT INFORMATION
  Report Type: Report from Study
  Country: US (occurrence: US)
  Receive Date: 20150828
  Receipt Date: 20150828
  Transmission Date: 20151125
  Serious: Yes (Hospitalization, Other)
  Sender: FDA-Public Use
  Company Number: US-BAXALTA-2015BLT001311

PATIENT
  Age: 60 Year
  Sex: Female

DRUGS (1)
  1. HYQVIA [Suspect]
     Active Substance: HUMAN IMMUNOGLOBULIN G\HYALURONIDASE RECOMBINANT HUMAN
     Indication: PRIMARY IMMUNODEFICIENCY SYNDROME
     Dosage: UNK, 1X A MONTH
     Route: 058

REACTIONS (4)
  - Focal segmental glomerulosclerosis [Unknown]
  - Local swelling [Unknown]
  - Osteoporosis [Unknown]
  - Bladder disorder [Unknown]

NARRATIVE: CASE EVENT DATE: 201412
